FAERS Safety Report 22843630 (Version 5)
Quarter: 2023Q4

REPORT INFORMATION
  Report Type: Spontaneous
  Country: US (occurrence: US)
  Receive Date: 20230821
  Receipt Date: 20231115
  Transmission Date: 20240110
  Serious: No
  Sender: FDA-Public Use
  Company Number: US-BRISTOL-MYERS SQUIBB COMPANY-2023-116771

PATIENT
  Age: 72 Year
  Sex: Female

DRUGS (1)
  1. REVLIMID [Suspect]
     Active Substance: LENALIDOMIDE
     Indication: Myelodysplastic syndrome
     Dosage: FREQUENCY : 28
     Route: 048
     Dates: start: 20230723

REACTIONS (10)
  - Nausea [Unknown]
  - Rash [Recovered/Resolved]
  - Dry skin [Recovered/Resolved]
  - Muscle spasms [Unknown]
  - Contusion [Unknown]
  - Nasopharyngitis [Recovering/Resolving]
  - Decreased appetite [Unknown]
  - Sinusitis [Unknown]
  - Brain fog [Unknown]
  - Joint swelling [Unknown]

NARRATIVE: CASE EVENT DATE: 20230818
